FAERS Safety Report 24565658 (Version 2)
Quarter: 2025Q2

REPORT INFORMATION
  Report Type: Report from Study
  Country: JP (occurrence: JP)
  Receive Date: 20241030
  Receipt Date: 20250424
  Transmission Date: 20250717
  Serious: No
  Sender: BIOMARIN
  Company Number: JP-BIOMARINAP-JP-2024-160746

PATIENT

DRUGS (9)
  1. PALYNZIQ [Suspect]
     Active Substance: PEGVALIASE-PQPZ
     Indication: Phenylketonuria
     Dosage: 10 MILLIGRAM, QW
     Route: 058
     Dates: start: 20231004
  2. PALYNZIQ [Suspect]
     Active Substance: PEGVALIASE-PQPZ
     Dosage: 2.5 MILLIGRAM, QW
     Route: 058
     Dates: start: 20230816, end: 20230921
  3. OLOPATADINE [Concomitant]
     Active Substance: OLOPATADINE
     Indication: Pruritus
  4. OLOPATADINE [Concomitant]
     Active Substance: OLOPATADINE
     Indication: Rash
  5. CELESTAMINE [Concomitant]
     Active Substance: BETAMETHASONE\DEXCHLORPHENIRAMINE MALEATE
     Indication: Pruritus
  6. CELESTAMINE [Concomitant]
     Active Substance: BETAMETHASONE\DEXCHLORPHENIRAMINE MALEATE
     Indication: Rash
  7. FAMOTIDINE [Concomitant]
     Active Substance: FAMOTIDINE
     Indication: Prophylaxis
     Dosage: 40 MILLIGRAM, QD
     Route: 048
     Dates: start: 20230816
  8. Calanol [Concomitant]
     Indication: Prophylaxis
     Route: 048
     Dates: start: 20230816
  9. FEXOFENADINE [Concomitant]
     Active Substance: FEXOFENADINE HYDROCHLORIDE
     Indication: Prophylaxis
     Dosage: 60 MILLIGRAM, BID
     Route: 048
     Dates: start: 20230816, end: 20231004

REACTIONS (1)
  - Facial discomfort [Recovered/Resolved]

NARRATIVE: CASE EVENT DATE: 20231004
